FAERS Safety Report 4356110-0 (Version None)
Quarter: 2004Q2

REPORT INFORMATION
  Report Type: 
  Country: None (occurrence: None)
  Receive Date: 20040511
  Receipt Date: 20040426
  Transmission Date: 20050107
  Serious: Yes (Death, Hospitalization)
  Sender: FDA-Public Use
  Company Number: DE-GLAXOSMITHKLINE-B0331038A

PATIENT
  Age: 80 Year
  Sex: Female
  Weight: 110 kg

DRUGS (8)
  1. AVANDAMET [Suspect]
     Dates: start: 20031126, end: 20040423
  2. ASPIRIN [Concomitant]
  3. ISOKET 20 [Concomitant]
  4. LORAZEPAM [Concomitant]
  5. DIPIPERON [Concomitant]
  6. HCT [Concomitant]
  7. FERRO SANOL [Concomitant]
  8. ENAHEXAL [Concomitant]

REACTIONS (4)
  - CARDIAC FAILURE [None]
  - CONFUSIONAL STATE [None]
  - PULMONARY OEDEMA [None]
  - WEIGHT INCREASED [None]
